FAERS Safety Report 7650761-3 (Version None)
Quarter: 2011Q3

REPORT INFORMATION
  Report Type: 
  Country: None (occurrence: None)
  Receive Date: 20110727
  Receipt Date: 20110717
  Transmission Date: 20111222
  Serious: Yes (Hospitalization)
  Sender: FDA-Public Use
  Company Number: DSA_47237_2011

PATIENT
  Age: 59 Year
  Sex: Male

DRUGS (2)
  1. WELLBUTRIN XL [Suspect]
     Indication: SMOKING CESSATION THERAPY
     Dosage: (150 MG ORAL)
     Route: 048
     Dates: start: 20110707, end: 20110707
  2. PREDNOL  /00049601/) [Concomitant]

REACTIONS (2)
  - IMPAIRED WORK ABILITY [None]
  - PARAESTHESIA [None]
